FAERS Safety Report 10564575 (Version 2)
Quarter: 2015Q4

REPORT INFORMATION
  Report Type: Spontaneous
  Country: US (occurrence: US)
  Receive Date: 20141104
  Receipt Date: 20151105
  Transmission Date: 20160304
  Serious: No
  Sender: FDA-Public Use
  Company Number: US-MALLINCKRODT-T201403210

PATIENT
  Sex: Male
  Weight: 104 kg

DRUGS (31)
  1. AMBIEN [Concomitant]
     Active Substance: ZOLPIDEM TARTRATE
     Dosage: UNK
  2. VITAMIN D WITH OMEGA 3 [Concomitant]
     Dosage: 6,000 UNITS DAILY
  3. HYDROXYZINE [Concomitant]
     Active Substance: HYDROXYZINE\HYDROXYZINE HYDROCHLORIDE
     Dosage: 25 MG; PRN
  4. FENTANYL TRANSDERMAL SYSTEM [Suspect]
     Active Substance: FENTANYL
     Dosage: 50 UG/HR, Q 72 HRS
     Route: 062
  5. MELOXICAM. [Concomitant]
     Active Substance: MELOXICAM
     Dosage: 15 MG; 1/2 TAB QD (CURRENCT NOT TAKING-BEEN OFF FOR 1 WEEK)
  6. DICYCLOMINE [Concomitant]
     Active Substance: DICYCLOMINE HYDROCHLORIDE
     Dosage: 10 MG; 2 CAPS Q4H PRN
     Route: 048
  7. FOLIC ACID. [Concomitant]
     Active Substance: FOLIC ACID
     Dosage: 1 MG; 1 TAB EVERY OTHER DAY
  8. CODEINE [Concomitant]
     Active Substance: CODEINE
     Indication: BREAKTHROUGH PAIN
     Dosage: 30 MG; 2 TABS Q 6 HRS PRN, HE TAKES 2 TABS IN AM, PM AND BEDTIME
  9. GAVISCON CHEWABLE [Concomitant]
  10. VALIUM [Concomitant]
     Active Substance: DIAZEPAM
     Dosage: 5 MG; UP TO 3 TIMES DAILY
  11. SIMETHICONE (DIMETHICONE) [Concomitant]
     Active Substance: DIMETHICONE
     Dosage: 80 MG; UP TO THREE TIMES DAILY PRN
  12. PHENERGAN [Concomitant]
     Active Substance: PROMETHAZINE HYDROCHLORIDE
     Dosage: 25 MG PRN
     Route: 054
  13. EUCERIN [Concomitant]
     Active Substance: ENSULIZOLE\EUCERIN\OCTINOXATE\OCTISALATE\TITANIUM DIOXIDE\ZINC OXIDE
     Dosage: ON BOTTOM OF FEET
  14. FENTANYL TRANSDERMAL SYSTEM [Suspect]
     Active Substance: FENTANYL
     Indication: PAIN
     Dosage: 50 UG/HR, Q 72 HRS
     Route: 062
     Dates: start: 201405
  15. SYNTHROID [Concomitant]
     Active Substance: LEVOTHYROXINE SODIUM
     Dosage: 0.25: 2 TABS TUES, THURS, SAT, SUN / 1 TAB ON  MON, WED, FRI
  16. ASPIRIN. [Concomitant]
     Active Substance: ASPIRIN
     Dosage: 18 MG Q AM
  17. SIMVASTATIN. [Concomitant]
     Active Substance: SIMVASTATIN
     Dosage: 80 MG, QHS
  18. VITAMIN B12 [Concomitant]
     Active Substance: CYANOCOBALAMIN
     Dosage: 1 ML Q MON
  19. KETOCONAZOLE. [Concomitant]
     Active Substance: KETOCONAZOLE
     Dosage: 2%, SHAMPOO 3 X PER WEEK
  20. HYDROCORTISONE. [Concomitant]
     Active Substance: HYDROCORTISONE
     Dosage: 1 % CLOTRIMAZOLE- APPLY TO RASH ON FACE/EARS/SCALP TWICE DAILY
  21. LIDOCAINE. [Concomitant]
     Active Substance: LIDOCAINE
     Dosage: 5% OINT OF CAPSAICIN MIXED WITH MENTHOL CAMPHOR, RUB ON BACK OF NECK AND DOWN BACK AND ON KNEES
  22. FENTANYL TRANSDERMAL SYSTEM [Suspect]
     Active Substance: FENTANYL
     Dosage: 75 UG/HR, Q 72 HRS
     Route: 062
  23. OMEPRAZOLE. [Concomitant]
     Active Substance: OMEPRAZOLE
     Indication: GASTROOESOPHAGEAL REFLUX DISEASE
     Dosage: 20 MG BID
  24. ZOLPIDEM [Concomitant]
     Active Substance: ZOLPIDEM\ZOLPIDEM TARTRATE
     Indication: INSOMNIA
     Dosage: 5 MG; 2 TABS Q HS PRN
  25. TYLENOL [Concomitant]
     Active Substance: ACETAMINOPHEN
     Dosage: 325 MG Q 4 HRS PRN
  26. MULTIVITAMINS [Concomitant]
     Active Substance: VITAMINS
     Dosage: OD
  27. LACTOBACILLUS ACIDOPHILUS [Concomitant]
     Active Substance: LACTOBACILLUS ACIDOPHILUS
     Dosage: 2 CAPSULES BID
  28. LOPERAMIDE [Concomitant]
     Active Substance: LOPERAMIDE
     Dosage: 2 MG, 1 CAP Q 12 HRS PRN
  29. BACITRACIN. [Concomitant]
     Active Substance: BACITRACIN
     Dosage: ON BOTTEM OF FEET WHERE CRACKED PLUS LANOLIN
  30. RANITIDINE [Concomitant]
     Active Substance: RANITIDINE\RANITIDINE HYDROCHLORIDE
     Dosage: 150 MG; 1 TAB BID PRN
  31. TRIAMCINOLONE [Concomitant]
     Active Substance: TRIAMCINOLONE
     Dosage: 0.1%, BID FOR ELBOWS, KNEES, SHINS

REACTIONS (6)
  - Insomnia [Not Recovered/Not Resolved]
  - Memory impairment [Not Recovered/Not Resolved]
  - Product adhesion issue [Unknown]
  - Drug effect decreased [Not Recovered/Not Resolved]
  - Fatigue [Not Recovered/Not Resolved]
  - Drug effect delayed [Not Recovered/Not Resolved]

NARRATIVE: CASE EVENT DATE: 2014
